FAERS Safety Report 17880458 (Version 1)
Quarter: 2020Q2

REPORT INFORMATION
  Report Type: Spontaneous
  Country: US (occurrence: US)
  Receive Date: 20200610
  Receipt Date: 20200610
  Transmission Date: 20200714
  Serious: Yes (Other)
  Sender: FDA-Public Use
  Company Number: None

PATIENT
  Age: 31 Year
  Sex: Female
  Weight: 11.25 kg

DRUGS (3)
  1. BACLOFEN. [Concomitant]
     Active Substance: BACLOFEN
  2. NURTEC ODT [Suspect]
     Active Substance: RIMEGEPANT SULFATE
     Indication: MIGRAINE
     Route: 060
     Dates: start: 20200522, end: 20200609
  3. LAMICTAL [Concomitant]
     Active Substance: LAMOTRIGINE

REACTIONS (1)
  - Lethargy [None]

NARRATIVE: CASE EVENT DATE: 20200609
